FAERS Safety Report 7215129-2 (Version None)
Quarter: 2011Q1

REPORT INFORMATION
  Report Type: 
  Country: None (occurrence: None)
  Receive Date: 20110107
  Receipt Date: 20100914
  Transmission Date: 20110831
  Serious: No
  Sender: FDA-Public Use
  Company Number: A0879249A

PATIENT
  Age: 94 Year
  Sex: Female

DRUGS (6)
  1. VERAPAMIL [Concomitant]
  2. RANITIDINE [Concomitant]
  3. HYDROCHLOROTHIAZIDE [Concomitant]
  4. CELEXA [Concomitant]
  5. METOPROLOL [Concomitant]
  6. LOVAZA [Suspect]
     Dosage: 1CAP TWICE PER DAY
     Route: 048
     Dates: start: 20100301, end: 20100803

REACTIONS (1)
  - URTICARIA [None]
